FAERS Safety Report 7880474-4 (Version None)
Quarter: 2011Q4

REPORT INFORMATION
  Report Type: 
  Country: None (occurrence: None)
  Receive Date: 20111101
  Receipt Date: 20111023
  Transmission Date: 20120403
  Serious: Yes (Hospitalization, Other)
  Sender: FDA-Public Use
  Company Number: PHHY2011BR94184

PATIENT
  Sex: Female
  Weight: 73 kg

DRUGS (12)
  1. BECLOMETHASONE DIPROPIONATE [Suspect]
     Dosage: UNK
     Dates: start: 20111024
  2. ACETAMINOPHEN [Concomitant]
     Indication: HEADACHE
     Dosage: 6 DF, QD
     Route: 048
  3. BECLOMETHASONE DIPROPIONATE [Suspect]
     Indication: EMPHYSEMA
     Dosage: 8 INHALATIONS DAILY
  4. SIMVASTATIN [Concomitant]
     Dosage: 40 MG, QD AFTER LUNCH
     Route: 048
     Dates: start: 20110201
  5. METFORMIN HCL [Concomitant]
     Dosage: UNK
  6. ISOSORBIDE MONONITRATE [Concomitant]
     Dosage: 1 DF, QD, AFTER LUNCH
     Route: 048
     Dates: start: 20110201
  7. PREDNISONE [Concomitant]
     Indication: PSEUDOMONAS INFECTION
     Dosage: 1 DF, QD
     Route: 048
  8. NOVOLIN 70/30 [Concomitant]
     Indication: DIABETES MELLITUS
     Dosage: 18 UNITS DAILY
     Route: 058
     Dates: start: 20100101
  9. SIMVASTATIN [Concomitant]
     Dosage: 1 DF, BID, MORNING AND NIGHT
     Dates: start: 20110201
  10. FORMOTEROL FUMARATE [Suspect]
     Indication: EMPHYSEMA
     Dosage: 8 INHALATIONS DAILY
     Dates: end: 20111023
  11. ASPIRIN [Concomitant]
     Dosage: 1 DF, QD, AFTER LUNCH
     Route: 048
     Dates: start: 20110201
  12. SPARFLOXACIN [Concomitant]
     Indication: PSEUDOMONAS INFECTION
     Dosage: 1 DF, Q8H
     Route: 048
     Dates: start: 20110201

REACTIONS (12)
  - PULMONARY FUNCTION TEST DECREASED [None]
  - OXYGEN SATURATION DECREASED [None]
  - CEREBROVASCULAR ACCIDENT [None]
  - PSEUDOMONAS INFECTION [None]
  - HYPOAESTHESIA [None]
  - DRUG DEPENDENCE [None]
  - GENERAL PHYSICAL HEALTH DETERIORATION [None]
  - CHEST PAIN [None]
  - INFARCTION [None]
  - DYSPNOEA [None]
  - HYPERTENSION [None]
  - HEADACHE [None]
